FAERS Safety Report 9631275 (Version 1)
Quarter: 2013Q4

REPORT INFORMATION
  Report Type: Spontaneous
  Country: BR (occurrence: BR)
  Receive Date: 20131018
  Receipt Date: 20131018
  Transmission Date: 20140711
  Serious: Yes (Other)
  Sender: FDA-Public Use
  Company Number: BR-SA-2013SA103018

PATIENT
  Age: 69 Year
  Sex: Female
  Weight: 46 kg

DRUGS (5)
  1. LANTUS [Suspect]
     Indication: TYPE 1 DIABETES MELLITUS
     Dosage: 3ML CATRIDGE DOSE:42 UNIT(S)
     Route: 058
     Dates: start: 2005
  2. CLIKSTAR [Concomitant]
     Indication: DEVICE THERAPY
  3. ATORVASTATIN [Concomitant]
     Indication: BLOOD CHOLESTEROL DECREASED
     Dosage: STRENGTH-40 MG
     Route: 048
     Dates: start: 2011
  4. ASPIRIN [Concomitant]
     Indication: ANTICOAGULANT THERAPY
     Dosage: STRENGTH-100 MG
     Route: 048
     Dates: start: 2008
  5. BRILINTA [Concomitant]
     Indication: ANTICOAGULANT THERAPY
     Dosage: STRENGTH-90 MG
     Route: 048
     Dates: start: 2010

REACTIONS (3)
  - Venous occlusion [Unknown]
  - Wound [Recovering/Resolving]
  - Pain [Recovering/Resolving]
